FAERS Safety Report 12283733 (Version 1)
Quarter: 2016Q2

REPORT INFORMATION
  Report Type: Spontaneous
  Country: US (occurrence: US)
  Receive Date: 20160419
  Receipt Date: 20160419
  Transmission Date: 20160815
  Serious: No
  Sender: FDA-Public Use
  Company Number: US-BANPHARM-20154336

PATIENT
  Age: 41 Year
  Sex: Female
  Weight: 99.79 kg

DRUGS (2)
  1. ALEVE [Suspect]
     Active Substance: NAPROXEN SODIUM
     Indication: PAIN
     Dosage: 1 DF, PRN,
     Route: 048
     Dates: end: 20151015
  2. CLARITIN [Concomitant]
     Active Substance: LORATADINE
     Dosage: PRN,

REACTIONS (3)
  - Joint swelling [Unknown]
  - Limb discomfort [Unknown]
  - Hypoaesthesia [Unknown]

NARRATIVE: CASE EVENT DATE: 20151015
